FAERS Safety Report 5131189-7 (Version None)
Quarter: 2006Q4

REPORT INFORMATION
  Report Type: 
  Country: None (occurrence: None)
  Receive Date: 20061017
  Receipt Date: 20061017
  Transmission Date: 20070319
  Serious: Yes (Other)
  Sender: FDA-Public Use
  Company Number: None

PATIENT
  Sex: Female

DRUGS (1)
  1. DEPO-PROVERA [Suspect]
     Indication: CONTRACEPTION
     Dosage: 1/3 MONTH   IM
     Route: 030
     Dates: start: 20060214, end: 20060214

REACTIONS (9)
  - ANAEMIA [None]
  - DEPRESSION [None]
  - DIZZINESS [None]
  - FATIGUE [None]
  - LOSS OF LIBIDO [None]
  - MENORRHAGIA [None]
  - MOOD SWINGS [None]
  - VAGINAL HAEMORRHAGE [None]
  - WEIGHT INCREASED [None]
